FAERS Safety Report 21894870 (Version 2)
Quarter: 2023Q1

REPORT INFORMATION
  Report Type: Report from Study
  Country: AR (occurrence: AR)
  Receive Date: 20230122
  Receipt Date: 20230130
  Transmission Date: 20230418
  Serious: Yes (Other)
  Sender: FDA-Public Use
  Company Number: AR-BIOGEN-2023BI01182334

PATIENT
  Sex: Female

DRUGS (1)
  1. SPINRAZA [Suspect]
     Active Substance: NUSINERSEN
     Indication: Spinal muscular atrophy
     Dosage: LOADING DOSE: FIRST DOSE DAY 0, SECOND DOSE DAY 14, THIRD DOSE DAY 28 AND FORTH DOSE DAY 63.
     Route: 050
     Dates: start: 20221108

REACTIONS (1)
  - Respiratory disorder [Not Recovered/Not Resolved]
